FAERS Safety Report 6669007-8 (Version None)
Quarter: 2010Q2

REPORT INFORMATION
  Report Type: 
  Country: None (occurrence: None)
  Receive Date: 20100406
  Receipt Date: 20100324
  Transmission Date: 20101027
  Serious: Yes (Hospitalization)
  Sender: FDA-Public Use
  Company Number: NL-BAYER-201020126GPV

PATIENT
  Age: 51 Year
  Sex: Female

DRUGS (2)
  1. MIRENA [Suspect]
     Indication: DRUG USE FOR UNKNOWN INDICATION
     Route: 015
     Dates: end: 20100106
  2. MARCUMAR [Interacting]
     Indication: DRUG USE FOR UNKNOWN INDICATION
     Route: 048
     Dates: start: 20040101, end: 20100115

REACTIONS (10)
  - AGITATION [None]
  - DECREASED APPETITE [None]
  - HEADACHE [None]
  - HYPERTENSION [None]
  - LIBIDO DECREASED [None]
  - MEMORY IMPAIRMENT [None]
  - SHOCK [None]
  - SLEEP DISORDER [None]
  - VAGINAL HAEMORRHAGE [None]
  - WEIGHT DECREASED [None]
